FAERS Safety Report 5133265-1 (Version None)
Quarter: 2006Q4

REPORT INFORMATION
  Report Type: 
  Country: None (occurrence: None)
  Receive Date: 20060830
  Receipt Date: 20060518
  Transmission Date: 20070319
  Serious: No
  Sender: FDA-Public Use
  Company Number: 06H-163-0308212-00

PATIENT
  Sex: Male

DRUGS (1)
  1. VANCOMYCIN HCL [Suspect]
     Indication: BLOOD CULTURE POSITIVE
     Dosage: 1 MG, ONCE - INFUSED OVER 1 HR, INTRAVENOUS
     Route: 042
     Dates: start: 20060513, end: 20060513

REACTIONS (1)
  - ANAPHYLACTIC REACTION [None]
